FAERS Safety Report 5356992-X (Version None)
Quarter: 2007Q2

REPORT INFORMATION
  Report Type: 
  Country: None (occurrence: None)
  Receive Date: 20070612
  Receipt Date: 20070612
  Transmission Date: 20071010
  Serious: No
  Sender: FDA-Public Use
  Company Number: None

PATIENT
  Age: 10 Year
  Sex: Female

DRUGS (2)
  1. CYCLOSPORINE [Suspect]
     Indication: FOCAL GLOMERULOSCLEROSIS
     Dosage: 100MG BID
  2. CYCLOSPORINE [Suspect]
     Indication: NEPHROTIC SYNDROME
     Dosage: 100MG BID

REACTIONS (26)
  - BLOOD CALCIUM DECREASED [None]
  - BLOOD CREATININE INCREASED [None]
  - BLOOD PHOSPHORUS INCREASED [None]
  - BLOOD PRESSURE INCREASED [None]
  - BLOOD UREA INCREASED [None]
  - DECREASED APPETITE [None]
  - DEHYDRATION [None]
  - DIARRHOEA [None]
  - DISEASE RECURRENCE [None]
  - DRUG LEVEL BELOW THERAPEUTIC [None]
  - EPIGASTRIC DISCOMFORT [None]
  - HYPOALBUMINAEMIA [None]
  - HYPOVOLAEMIA [None]
  - LIPASE INCREASED [None]
  - NEPHROTIC SYNDROME [None]
  - ORAL INTAKE REDUCED [None]
  - PERIORBITAL OEDEMA [None]
  - PROTEIN URINE [None]
  - PULMONARY OEDEMA [None]
  - RENAL FAILURE ACUTE [None]
  - RESPIRATORY DISTRESS [None]
  - TREATMENT NONCOMPLIANCE [None]
  - URINE OUTPUT DECREASED [None]
  - URINE PROTEIN/CREATININE RATIO INCREASED [None]
  - VOMITING [None]
  - WEIGHT INCREASED [None]
